FAERS Safety Report 7740737-X (Version None)
Quarter: 2011Q3

REPORT INFORMATION
  Report Type: 
  Country: None (occurrence: None)
  Receive Date: 20110909
  Receipt Date: 20110906
  Transmission Date: 20111222
  Serious: Yes (Hospitalization)
  Sender: FDA-Public Use
  Company Number: FR-PFIZER INC-2011149641

PATIENT
  Age: 12 Year
  Sex: Female
  Weight: 33 kg

DRUGS (1)
  1. SOMATROPIN RDNA [Suspect]
     Indication: GROWTH HORMONE DEFICIENCY
     Dosage: 1.2 MG DAILY, 6 DAYS OUT OF 7
     Route: 058
     Dates: start: 20110501, end: 20110610

REACTIONS (12)
  - CHEST PAIN [None]
  - PHOTOPSIA [None]
  - DYSPNOEA [None]
  - MALAISE [None]
  - VERTIGO [None]
  - NAUSEA [None]
  - FEELING HOT [None]
  - SENSE OF OPPRESSION [None]
  - ASTHENIA [None]
  - PALPITATIONS [None]
  - POLYURIA [None]
  - POLYDIPSIA [None]
